FAERS Safety Report 8866179 (Version 2)
Quarter: 2013Q1

REPORT INFORMATION
  Report Type: Spontaneous
  Country: SE (occurrence: SE)
  Receive Date: 20121025
  Receipt Date: 20130109
  Transmission Date: 20140127
  Serious: Yes (Death, Hospitalization, Disabling, Other)
  Sender: FDA-Public Use
  Company Number: SE-ROCHE-1116920

PATIENT
  Age: 69 Year
  Sex: Male
  Weight: 76 kg

DRUGS (11)
  1. MABTHERA [Suspect]
     Indication: POLYMYOSITIS
     Route: 042
     Dates: start: 20100712, end: 20120814
  2. PREDNISOLONE [Concomitant]
  3. FOLACIN [Concomitant]
     Route: 065
  4. OMEPRAZOLE [Concomitant]
  5. METOJECT [Concomitant]
     Indication: POLYMYOSITIS
     Route: 058
     Dates: start: 20080514
  6. LASIX RETARD [Concomitant]
  7. CLOPIDOGREL [Concomitant]
     Route: 065
  8. LIPITOR [Concomitant]
     Route: 065
  9. BISOPROLOL [Concomitant]
  10. TROMBYL [Concomitant]
  11. IDEOS [Concomitant]
     Route: 065

REACTIONS (2)
  - Progressive multifocal leukoencephalopathy [Not Recovered/Not Resolved]
  - Progressive multifocal leukoencephalopathy [Fatal]
